FAERS Safety Report 24656853 (Version 1)
Quarter: 2024Q4

REPORT INFORMATION
  Report Type: Spontaneous
  Country: FR (occurrence: FR)
  Receive Date: 20241125
  Receipt Date: 20241125
  Transmission Date: 20250115
  Serious: Yes (Hospitalization, Other)
  Sender: AUROBINDO
  Company Number: FR-AFSSAPS-SE2024000612

PATIENT
  Age: 54 Year
  Sex: Female

DRUGS (15)
  1. CLOZAPINE [Suspect]
     Active Substance: CLOZAPINE
     Indication: Schizophrenia
     Dosage: 300 MILLIGRAM, ONCE A DAY
     Route: 048
     Dates: start: 20240521, end: 20240720
  2. QUETIAPINE [Suspect]
     Active Substance: QUETIAPINE
     Indication: Schizophrenia
     Dosage: 600 MILLIGRAM, ONCE A DAY [600 MG (INCREASE TO 700 MG FROM 05 TO 09/07/24)]
     Route: 048
     Dates: start: 201801, end: 20240704
  3. QUETIAPINE [Suspect]
     Active Substance: QUETIAPINE
     Dosage: 700 MILLIGRAM, ONCE A DAY [600 MG THEN INCREASED TO 700 MG FROM 05 TO 09/07/24 THEN 300 MG ON 18/07
     Route: 048
     Dates: start: 20240705, end: 20240709
  4. QUETIAPINE [Suspect]
     Active Substance: QUETIAPINE
     Dosage: 600 MILLIGRAM, ONCE A DAY [600 MG (INCREASE TO 700 MG FROM 05 TO 09/07/24)]
     Route: 048
     Dates: start: 20240718
  5. VALPROATE SODIUM [Suspect]
     Active Substance: VALPROATE SODIUM
     Indication: Affective disorder
     Dosage: 500 MILLIGRAM, ONCE A DAY
     Route: 048
     Dates: start: 201406
  6. VALPROATE SODIUM [Suspect]
     Active Substance: VALPROATE SODIUM
     Dosage: 1500 MILLIGRAM, ONCE A DAY
     Route: 048
     Dates: start: 201706
  7. VALPROATE SODIUM [Suspect]
     Active Substance: VALPROATE SODIUM
     Dosage: 500 MILLIGRAM, ONCE A DAY
     Route: 048
     Dates: start: 20240715
  8. VALPROATE SODIUM [Suspect]
     Active Substance: VALPROATE SODIUM
     Dosage: UNK
     Route: 065
     Dates: start: 20240214
  9. PIPOTIAZINE [Suspect]
     Active Substance: PIPOTIAZINE
     Indication: Product used for unknown indication
     Dosage: 10 MILLIGRAM, ONCE A DAY
     Route: 065
  10. PIPOTIAZINE [Suspect]
     Active Substance: PIPOTIAZINE
     Dosage: 20 MILLIGRAM, ONCE A DAY
     Route: 065
     Dates: start: 202407
  11. TRIMEPRAZINE [Suspect]
     Active Substance: TRIMEPRAZINE
     Indication: Product used for unknown indication
     Dosage: 10 MILLIGRAM, ONCE A DAY
     Route: 065
  12. TRIMEPRAZINE [Suspect]
     Active Substance: TRIMEPRAZINE
     Dosage: 25 MILLIGRAM, ONCE A DAY
     Route: 065
  13. OXAZEPAM [Suspect]
     Active Substance: OXAZEPAM
     Indication: Product used for unknown indication
     Dosage: 125 MILLIGRAM
     Route: 065
  14. OXAZEPAM [Suspect]
     Active Substance: OXAZEPAM
     Dosage: 75 MILLIGRAM
     Route: 065
     Dates: start: 20240718
  15. SULFIRAM [Suspect]
     Active Substance: SULFIRAM
     Indication: Product used for unknown indication
     Dosage: 200 MILLIGRAM, ONCE A DAY (BETWEEN 12/02/2024 AND 13/05/2024 (DATE UNKNOWN))
     Route: 065

REACTIONS (4)
  - Hepatitis acute [Recovered/Resolved]
  - Hypotonia [Recovered/Resolved]
  - Fall [Recovered/Resolved]
  - COVID-19 [Unknown]

NARRATIVE: CASE EVENT DATE: 20240607
